FAERS Safety Report 9748604 (Version 2)
Quarter: 2013Q4

REPORT INFORMATION
  Report Type: Spontaneous
  Country: FR (occurrence: FR)
  Receive Date: 20131212
  Receipt Date: 20131230
  Transmission Date: 20140711
  Serious: Yes (Hospitalization)
  Sender: FDA-Public Use
  Company Number: FR-TEVA-449014ISR

PATIENT
  Age: 84 Year
  Sex: Female

DRUGS (6)
  1. LEVETIRACETAM [Suspect]
     Dosage: 1000 MILLIGRAM DAILY;
     Route: 065
  2. LEVETIRACETAM [Suspect]
     Dosage: 1250 MILLIGRAM DAILY;
     Route: 065
  3. SODIUM VALPROATE [Concomitant]
     Dosage: 1000 MILLIGRAM DAILY;
     Route: 065
  4. LAMOTRIGINE [Concomitant]
     Dosage: 100 MILLIGRAM DAILY;
     Route: 065
  5. LOPRAZOLAM [Concomitant]
     Dosage: 1 MILLIGRAM DAILY;
     Route: 065
  6. FUROSEMIDE [Concomitant]
     Dosage: 20 MILLIGRAM DAILY;
     Route: 065

REACTIONS (1)
  - Encephalopathy [Recovering/Resolving]
